FAERS Safety Report 8890638 (Version 2)
Quarter: 2013Q2

REPORT INFORMATION
  Report Type: Spontaneous
  Country: US (occurrence: US)
  Receive Date: 20121107
  Receipt Date: 20130507
  Transmission Date: 20140414
  Serious: Yes (Other)
  Sender: FDA-Public Use
  Company Number: US-UCBSA-070251

PATIENT
  Age: 25 Year
  Sex: Male

DRUGS (1)
  1. CIMZIA [Suspect]
     Dates: start: 20120911, end: 201303

REACTIONS (1)
  - Self-injurious ideation [Unknown]
